FAERS Safety Report 9675984 (Version 1)
Quarter: 2013Q4

REPORT INFORMATION
  Report Type: Spontaneous
  Country: US (occurrence: US)
  Receive Date: 20131107
  Receipt Date: 20131107
  Transmission Date: 20140711
  Serious: Yes (Other)
  Sender: FDA-Public Use
  Company Number: US-TEVA-443114USA

PATIENT
  Sex: Female
  Weight: 94.79 kg

DRUGS (8)
  1. FEXOFENADINE [Suspect]
     Indication: HYPERSENSITIVITY
     Dosage: 180 MILLIGRAM DAILY;
     Route: 048
     Dates: start: 201303, end: 20131029
  2. TOCOPHEROL [Concomitant]
  3. LIPID MODIFYING AGENTS [Concomitant]
  4. FISH OIL [Concomitant]
  5. VENLAFAXINE [Concomitant]
  6. GABAPENTIN [Concomitant]
     Dates: start: 2011
  7. CELECOXIB [Concomitant]
     Dates: start: 201303
  8. METOPROLOL [Concomitant]
     Indication: PULSE ABNORMAL

REACTIONS (1)
  - Heart rate increased [Recovered/Resolved]
